FAERS Safety Report 13956378 (Version 3)
Quarter: 2018Q1

REPORT INFORMATION
  Report Type: Spontaneous
  Country: FI (occurrence: FI)
  Receive Date: 20170911
  Receipt Date: 20180305
  Transmission Date: 20180508
  Serious: Yes (Other)
  Sender: FDA-Public Use
  Company Number: FI-SA-2015SA012710

PATIENT
  Age: 35 Year
  Sex: Female

DRUGS (4)
  1. AUBAGIO [Suspect]
     Active Substance: TERIFLUNOMIDE
     Indication: MULTIPLE SCLEROSIS
     Route: 048
     Dates: start: 20140912, end: 2017
  2. OFTAN-CHLORA [Interacting]
     Active Substance: CHLORAMPHENICOL
     Indication: CONJUNCTIVITIS
     Route: 065
     Dates: start: 20150105, end: 20150127
  3. THYROXIN [Concomitant]
     Active Substance: LEVOTHYROXINE
     Route: 065
  4. MIRENA [Concomitant]
     Active Substance: LEVONORGESTREL
     Indication: CONTRACEPTION

REACTIONS (7)
  - Diarrhoea [Recovered/Resolved]
  - Drug interaction [Unknown]
  - Colitis microscopic [Recovering/Resolving]
  - Neutrophil count decreased [Recovering/Resolving]
  - Fatigue [Recovering/Resolving]
  - Enteritis [Recovering/Resolving]
  - White blood cell count decreased [Recovering/Resolving]
